FAERS Safety Report 9650680 (Version 3)
Quarter: 2013Q4

REPORT INFORMATION
  Report Type: Spontaneous
  Country: US (occurrence: US)
  Receive Date: 20131029
  Receipt Date: 20131127
  Transmission Date: 20140711
  Serious: Yes (Hospitalization)
  Sender: FDA-Public Use
  Company Number: US-PFIZER INC-2013135279

PATIENT
  Age: 90 Year
  Sex: Male
  Weight: 71.66 kg

DRUGS (1)
  1. LYRICA [Suspect]
     Indication: PARAESTHESIA
     Dosage: 75 MG, 3X/DAY
     Route: 048
     Dates: start: 201304

REACTIONS (1)
  - Fall [Unknown]
